FAERS Safety Report 5291985-2 (Version None)
Quarter: 2007Q2

REPORT INFORMATION
  Report Type: 
  Country: None (occurrence: None)
  Receive Date: 20070403
  Receipt Date: 20070322
  Transmission Date: 20071010
  Serious: Yes (Hospitalization)
  Sender: FDA-Public Use
  Company Number: 2006PV018586

PATIENT
  Age: 49 Year
  Sex: Female
  Weight: 135.1719 kg

DRUGS (4)
  1. BYETTA [Suspect]
     Indication: DIABETES MELLITUS NON-INSULIN-DEPENDENT
     Dosage: SEE IMAGE
     Route: 058
     Dates: start: 20060604, end: 20060722
  2. BYETTA [Suspect]
     Indication: DIABETES MELLITUS NON-INSULIN-DEPENDENT
     Dosage: SEE IMAGE
     Route: 058
     Dates: start: 20060723, end: 20070305
  3. METFORMIN HCL [Concomitant]
  4. ACTOS [Concomitant]

REACTIONS (20)
  - ABDOMINAL DISTENSION [None]
  - DIZZINESS [None]
  - DRUG INEFFECTIVE FOR UNAPPROVED INDICATION [None]
  - DYSPNOEA [None]
  - FLATULENCE [None]
  - GASTROINTESTINAL PAIN [None]
  - HEADACHE [None]
  - HYPOGLYCAEMIA [None]
  - INJECTION SITE BRUISING [None]
  - INJECTION SITE INFLAMMATION [None]
  - INJECTION SITE IRRITATION [None]
  - INJECTION SITE PAIN [None]
  - INJECTION SITE SWELLING [None]
  - IRRITABILITY [None]
  - NAUSEA [None]
  - OEDEMA PERIPHERAL [None]
  - PULMONARY EMBOLISM [None]
  - TREMOR [None]
  - VENOUS THROMBOSIS LIMB [None]
  - WRONG TECHNIQUE IN DRUG USAGE PROCESS [None]
